FAERS Safety Report 8052433-2 (Version None)
Quarter: 2012Q1

REPORT INFORMATION
  Report Type: 
  Country: None (occurrence: None)
  Receive Date: 20120118
  Receipt Date: 20120116
  Transmission Date: 20120608
  Serious: Yes (Congenital Anomaly, Other)
  Sender: FDA-Public Use
  Company Number: DE-PFIZER INC-2011315531

PATIENT
  Sex: Female
  Weight: 2.74 kg

DRUGS (3)
  1. PENICILLIN NOS [Concomitant]
     Indication: BRONCHITIS
     Route: 064
  2. ZOLOFT [Suspect]
     Indication: DEPRESSION
     Dosage: 150MG/DAY
     Route: 064
     Dates: start: 20100511, end: 20100802
  3. ZOLOFT [Suspect]
     Dosage: 100MG/DAY
     Route: 064
     Dates: start: 20100803, end: 20110203

REACTIONS (4)
  - FOETAL GROWTH RESTRICTION [None]
  - PULMONARY ARTERY STENOSIS CONGENITAL [None]
  - MATERNAL EXPOSURE TIMING UNSPECIFIED [None]
  - ATRIAL SEPTAL DEFECT [None]
